FAERS Safety Report 10835149 (Version 1)
Quarter: 2015Q1

REPORT INFORMATION
  Report Type: Report from Study
  Country: US (occurrence: US)
  Receive Date: 20150219
  Receipt Date: 20150219
  Transmission Date: 20150721
  Serious: No
  Sender: FDA-Public Use
  Company Number: US-ABBVIE-14P-163-1208271-00

PATIENT
  Sex: Female

DRUGS (3)
  1. HUMIRA [Suspect]
     Active Substance: ADALIMUMAB
     Indication: PSORIASIS
     Dates: start: 20140220
  2. BENTYL [Concomitant]
     Active Substance: DICYCLOMINE HYDROCHLORIDE
     Indication: IRRITABLE BOWEL SYNDROME
  3. ESTRADIOL. [Concomitant]
     Active Substance: ESTRADIOL
     Indication: HORMONE REPLACEMENT THERAPY

REACTIONS (1)
  - Psoriasis [Not Recovered/Not Resolved]
